FAERS Safety Report 7198729-8 (Version None)
Quarter: 2010Q4

REPORT INFORMATION
  Report Type: 
  Country: None (occurrence: None)
  Receive Date: 20101227
  Receipt Date: 20100330
  Transmission Date: 20110411
  Serious: No
  Sender: FDA-Public Use
  Company Number: US-ABBOTT-10P-163-0636453-00

PATIENT
  Sex: Male
  Weight: 143.01 kg

DRUGS (3)
  1. LUPRON DEPOT [Suspect]
     Indication: PROSTATE CANCER
     Dates: start: 20091201
  2. TAXOL [Concomitant]
     Indication: PROSTATE CANCER
  3. ZOLEDRONIC ACID [Concomitant]
     Indication: PROSTATE CANCER

REACTIONS (1)
  - DRUG EFFECT DECREASED [None]
